FAERS Safety Report 14509239 (Version 1)
Quarter: 2018Q1

REPORT INFORMATION
  Report Type: Spontaneous
  Country: US (occurrence: US)
  Receive Date: 20180209
  Receipt Date: 20180209
  Transmission Date: 20180509
  Serious: Yes (Death, Life-Threatening, Hospitalization, Disabling, Other)
  Sender: FDA-Public Use
  Company Number: US-TEVA-2018-US-856194

PATIENT
  Sex: Male

DRUGS (1)
  1. AMIODARONE [Suspect]
     Active Substance: AMIODARONE
     Indication: ATRIAL FIBRILLATION

REACTIONS (19)
  - Interstitial lung disease [Fatal]
  - Wheezing [Unknown]
  - Off label use [Unknown]
  - Oedema [Unknown]
  - Hallucination [Unknown]
  - Adverse event [Unknown]
  - Pneumonia [Fatal]
  - Dyspnoea [Unknown]
  - Cough [Unknown]
  - Pneumothorax [Unknown]
  - Gait disturbance [Unknown]
  - Dyspnoea [Unknown]
  - Skin irritation [Unknown]
  - Fatigue [Unknown]
  - Asthenia [Unknown]
  - Decreased appetite [Unknown]
  - Toxicity to various agents [Unknown]
  - Depression [Unknown]
  - Amnesia [Unknown]

NARRATIVE: CASE EVENT DATE: 201709
